FAERS Safety Report 16332810 (Version 2)
Quarter: 2019Q3

REPORT INFORMATION
  Report Type: Spontaneous
  Country: US (occurrence: US)
  Receive Date: 20190520
  Receipt Date: 20190722
  Transmission Date: 20191004
  Serious: No
  Sender: FDA-Public Use
  Company Number: US-PFIZER INC-2019213165

PATIENT
  Age: 72 Year
  Sex: Male
  Weight: 79.37 kg

DRUGS (2)
  1. VIZIMPRO [Suspect]
     Active Substance: DACOMITINIB
     Indication: NEOPLASM MALIGNANT
     Dosage: 30 MG, 1X/DAY
     Route: 048
     Dates: start: 20190510
  2. LISINOPRIL. [Concomitant]
     Active Substance: LISINOPRIL
     Indication: HYPERTENSION
     Dosage: 40 MG, 1X/DAY (ONE TABLET A DAY)

REACTIONS (2)
  - Hypertension [Unknown]
  - Product dose omission [Unknown]
